FAERS Safety Report 22638971 (Version 1)
Quarter: 2023Q2

REPORT INFORMATION
  Report Type: Other
  Country: US (occurrence: None)
  Receive Date: 20230626
  Receipt Date: 20230626
  Transmission Date: 20230722
  Serious: Yes (Hospitalization, Other)
  Sender: FDA-Public Use
  Company Number: US-ROCHE-3369448

PATIENT
  Age: 63 Year
  Sex: Male

DRUGS (1)
  1. OCREVUS [Suspect]
     Active Substance: OCRELIZUMAB
     Indication: Multiple sclerosis
     Dosage: DATE OF TREATMENT: 29/NOV/2022
     Route: 065
     Dates: start: 20220524

REACTIONS (3)
  - Staphylococcal infection [Unknown]
  - Abscess [Unknown]
  - Retinal detachment [Recovered/Resolved]
